FAERS Safety Report 16209099 (Version 2)
Quarter: 2019Q2

REPORT INFORMATION
  Report Type: Spontaneous
  Country: US (occurrence: US)
  Receive Date: 20190417
  Receipt Date: 20190521
  Transmission Date: 20190711
  Serious: No
  Sender: FDA-Public Use
  Company Number: US-ASTRAZENECA-2019SE45001

PATIENT
  Age: 87 Year
  Sex: Female
  Weight: 83.9 kg

DRUGS (1)
  1. SYMBICORT [Suspect]
     Active Substance: BUDESONIDE\FORMOTEROL FUMARATE DIHYDRATE
     Indication: CHRONIC OBSTRUCTIVE PULMONARY DISEASE
     Dosage: 80/4.5 MCG TWO TIMES A DAY
     Route: 055
     Dates: start: 2016

REACTIONS (12)
  - Product use in unapproved indication [Unknown]
  - Device issue [Unknown]
  - Musculoskeletal stiffness [Unknown]
  - Body height decreased [Unknown]
  - Weight increased [Unknown]
  - Intentional product misuse [Unknown]
  - Device failure [Unknown]
  - Product dose omission [Unknown]
  - Confusional state [Unknown]
  - Off label use [Unknown]
  - Arthritis [Not Recovered/Not Resolved]
  - Memory impairment [Unknown]

NARRATIVE: CASE EVENT DATE: 2016
